FAERS Safety Report 24310912 (Version 1)
Quarter: 2024Q3

REPORT INFORMATION
  Report Type: Spontaneous
  Country: US (occurrence: US)
  Receive Date: 20240912
  Receipt Date: 20240912
  Transmission Date: 20241017
  Serious: Yes (Death, Other)
  Sender: SPECGX
  Company Number: US-SPECGX-T202401855

PATIENT
  Age: 63 Year
  Sex: Female

DRUGS (8)
  1. POSACONAZOLE [Suspect]
     Active Substance: POSACONAZOLE
     Indication: Scedosporium infection
     Dosage: UNK
     Route: 065
  2. AZACITIDINE [Suspect]
     Active Substance: AZACITIDINE
     Indication: Myelodysplastic syndrome
     Dosage: UNK
     Route: 065
  3. VENETOCLAX [Suspect]
     Active Substance: VENETOCLAX
     Indication: Myelodysplastic syndrome
     Dosage: UNK
     Route: 065
  4. LEVOFLOXACIN [Suspect]
     Active Substance: LEVOFLOXACIN
     Indication: Stenotrophomonas infection
     Dosage: UNK
     Route: 065
  5. VORICONAZOLE [Suspect]
     Active Substance: VORICONAZOLE
     Indication: Stenotrophomonas infection
     Dosage: UNK
     Route: 065
  6. CEFEPIME [Suspect]
     Active Substance: CEFEPIME HYDROCHLORIDE
     Indication: Pneumonia
     Dosage: UNK
     Route: 065
  7. AZITHROMYCIN [Suspect]
     Active Substance: AZITHROMYCIN
     Indication: Pneumonia
     Dosage: UNK
     Route: 065
  8. MINOCYCLINE [Suspect]
     Active Substance: MINOCYCLINE HYDROCHLORIDE
     Indication: Pneumonia
     Dosage: UNK
     Route: 065

REACTIONS (14)
  - Neoplasm progression [Fatal]
  - Liver abscess [Unknown]
  - Acute kidney injury [Unknown]
  - Fall [Unknown]
  - Subdural haematoma [Unknown]
  - Encephalopathy [Unknown]
  - Respiratory failure [Unknown]
  - Septic shock [Unknown]
  - Endotracheal intubation [Unknown]
  - Mechanical ventilation [Unknown]
  - Renal impairment [Unknown]
  - Renal replacement therapy [Unknown]
  - Enterococcal infection [Unknown]
  - Product use in unapproved indication [Unknown]
